FAERS Safety Report 20946621 (Version 1)
Quarter: 2022Q2

REPORT INFORMATION
  Report Type: Spontaneous
  Country: US (occurrence: None)
  Receive Date: 20220610
  Receipt Date: 20220610
  Transmission Date: 20220721
  Serious: No
  Sender: FDA-Public Use
  Company Number: None

PATIENT
  Age: 63 Year
  Sex: Male

DRUGS (1)
  1. DUPIXENT [Suspect]
     Active Substance: DUPILUMAB
     Indication: Dermatitis atopic
     Dosage: OTHER QUANTITY : 300MG/2ML;?FREQUENCY : EVERY OTHER WEEK;?
     Route: 058
     Dates: start: 20220104, end: 20220610

REACTIONS (6)
  - Urticaria [None]
  - Rash [None]
  - Rash [None]
  - Rash erythematous [None]
  - Rash pruritic [None]
  - Skin disorder [None]

NARRATIVE: CASE EVENT DATE: 20220215
